FAERS Safety Report 12809598 (Version 2)
Quarter: 2016Q4

REPORT INFORMATION
  Report Type: Spontaneous
  Country: CL (occurrence: CL)
  Receive Date: 20161005
  Receipt Date: 20161014
  Transmission Date: 20170207
  Serious: No
  Sender: FDA-Public Use
  Company Number: CL-AMGEN-CHLSP2016135013

PATIENT
  Age: 23 Year
  Sex: Female

DRUGS (1)
  1. ENBREL [Suspect]
     Active Substance: ETANERCEPT
     Indication: PRODUCT USED FOR UNKNOWN INDICATION
     Dosage: UNK UNK, UNK
     Route: 065
     Dates: end: 2016

REACTIONS (10)
  - Hypersensitivity [Recovered/Resolved]
  - Ocular hyperaemia [Recovered/Resolved]
  - Injection site mass [Recovered/Resolved]
  - Injection site urticaria [Not Recovered/Not Resolved]
  - Fatigue [Unknown]
  - Injection site inflammation [Recovered/Resolved]
  - Headache [Recovered/Resolved]
  - Injection site erythema [Recovered/Resolved]
  - Injection site pruritus [Recovered/Resolved]
  - Injection site pain [Recovered/Resolved]

NARRATIVE: CASE EVENT DATE: 20160926
